FAERS Safety Report 4684523-6 (Version None)
Quarter: 2005Q2

REPORT INFORMATION
  Report Type: 
  Country: None (occurrence: None)
  Receive Date: 20050603
  Receipt Date: 20050520
  Transmission Date: 20051028
  Serious: Yes (Disabling)
  Sender: FDA-Public Use
  Company Number: 2005080864

PATIENT
  Age: 61 Year
  Sex: Male

DRUGS (2)
  1. DOXEPIN HCL [Suspect]
     Indication: DEPRESSION
  2. LITHIUM [Concomitant]

REACTIONS (5)
  - ASTHENIA [None]
  - DEPRESSION [None]
  - DYSPHORIA [None]
  - INSOMNIA [None]
  - IRRITABILITY [None]
